FAERS Safety Report 6022213-8 (Version None)
Quarter: 2008Q4

REPORT INFORMATION
  Report Type: 
  Country: None (occurrence: None)
  Receive Date: 20081229
  Receipt Date: 20081222
  Transmission Date: 20090506
  Serious: Yes (Other)
  Sender: FDA-Public Use
  Company Number: AT-ELI_LILLY_AND_COMPANY-AT200812005469

PATIENT
  Age: 15 Year
  Sex: Male
  Weight: 56 kg

DRUGS (4)
  1. STRATTERA [Suspect]
     Indication: ATTENTION DEFICIT/HYPERACTIVITY DISORDER
     Dosage: 18 MG, DAILY (1/D)
     Route: 048
     Dates: start: 20080815
  2. STRATTERA [Suspect]
     Dosage: 25 MG, DAILY (1/D)
     Route: 048
     Dates: end: 20080905
  3. RISPERIDONE [Concomitant]
     Indication: TIC
     Dosage: 1.5 MG, DAILY (1/D)
     Route: 048
     Dates: start: 20080729, end: 20080915
  4. RITALIN [Concomitant]
     Indication: ATTENTION DEFICIT/HYPERACTIVITY DISORDER
     Dosage: 15 MG, DAILY (1/D)
     Route: 048

REACTIONS (2)
  - DYSPHORIA [None]
  - SUICIDAL IDEATION [None]
